FAERS Safety Report 6062696-0 (Version None)
Quarter: 2009Q1

REPORT INFORMATION
  Report Type: 
  Country: None (occurrence: None)
  Receive Date: 20090203
  Receipt Date: 20090123
  Transmission Date: 20090719
  Serious: Yes (Death, Hospitalization, Other)
  Sender: FDA-Public Use
  Company Number: PHHO2005IT12976

PATIENT
  Sex: Female
  Weight: 69 kg

DRUGS (3)
  1. TASIGNA [Suspect]
     Indication: ACUTE LYMPHOCYTIC LEUKAEMIA
     Dosage: 400 MG, BID
     Route: 048
     Dates: start: 20050801, end: 20050819
  2. TASIGNA [Suspect]
     Dosage: UNK, NO TREATMENT
     Dates: start: 20050820, end: 20050828
  3. TASIGNA [Suspect]
     Dosage: 400 MG, BID
     Route: 048
     Dates: start: 20050829, end: 20050914

REACTIONS (6)
  - ACUTE RESPIRATORY FAILURE [None]
  - ASTHENIA [None]
  - HYPERBILIRUBINAEMIA [None]
  - PANCYTOPENIA [None]
  - PNEUMONIA FUNGAL [None]
  - PYREXIA [None]
